FAERS Safety Report 18978637 (Version 1)
Quarter: 2021Q1

REPORT INFORMATION
  Report Type: Spontaneous
  Country: SE (occurrence: SE)
  Receive Date: 20210308
  Receipt Date: 20210308
  Transmission Date: 20210420
  Serious: Yes (Other)
  Sender: FDA-Public Use
  Company Number: SE-ORGANON-O2103SWE000169

PATIENT
  Age: 64 Year
  Sex: Female

DRUGS (9)
  1. LOSARTAN POTASSIUM AND HYDROCHLOROTHIAZIDE [Suspect]
     Active Substance: HYDROCHLOROTHIAZIDE\LOSARTAN POTASSIUM
     Dosage: STRENGTH 100/25; DOSE: 1 (UNITS NOT REPORTED), QD
     Dates: end: 2020
  2. LERCANIDIPINE [Concomitant]
     Active Substance: LERCANIDIPINE
     Dosage: 10 MILLIGRAM, QD
  3. METOPROLOL. [Concomitant]
     Active Substance: METOPROLOL
     Dosage: 100 MILLIGRAM, QD
  4. LERGIGAN [PROMETHAZINE HYDROCHLORIDE] [Concomitant]
     Active Substance: PROMETHAZINE HYDROCHLORIDE
     Dosage: 75 MILLIGRAM, QD
  5. KALEORID [Concomitant]
     Active Substance: POTASSIUM CHLORIDE
     Dosage: DOSE: 1500 MILLIGRAM, QD
  6. ONDANSETRON [Concomitant]
     Active Substance: ONDANSETRON
     Dosage: DOSE: 2 (UNITS NOT REPORTED), QD
  7. FINACEA [Concomitant]
     Active Substance: AZELAIC ACID
     Dosage: DOSE: 2 (UNITS NOT REPORTED), QD
  8. METOPROLOL. [Concomitant]
     Active Substance: METOPROLOL
     Dosage: 50 MILLIGRAM, QD
  9. HALDOL [Concomitant]
     Active Substance: HALOPERIDOL
     Dosage: DOSAGE: 0.5 X 2; DOSE: 2 (UNITS NOT REPORTED), QD

REACTIONS (1)
  - Prerenal failure [Unknown]

NARRATIVE: CASE EVENT DATE: 2020
